FAERS Safety Report 7306694-5 (Version None)
Quarter: 2011Q1

REPORT INFORMATION
  Report Type: 
  Country: None (occurrence: None)
  Receive Date: 20110222
  Receipt Date: 20110210
  Transmission Date: 20110831
  Serious: Yes (Hospitalization)
  Sender: FDA-Public Use
  Company Number: CO-GENENTECH-313864

PATIENT
  Sex: Male

DRUGS (4)
  1. PREDNISOLONE [Concomitant]
     Indication: SJOGREN'S SYNDROME
     Dosage: UNK UNK, QAM
     Route: 048
  2. ACETAMINOPHEN [Concomitant]
     Indication: PAIN
     Dosage: UNK UNK, QAM
     Route: 048
  3. OMEPRAZOLE [Concomitant]
     Indication: PAIN
     Dosage: UNK UNK, QAM
     Route: 048
  4. MABTHERA [Suspect]
     Indication: SJOGREN'S SYNDROME
     Dosage: 1000 MG, UNK
     Route: 042
     Dates: start: 20100813

REACTIONS (2)
  - INTERSTITIAL LUNG DISEASE [None]
  - ACUTE RESPIRATORY FAILURE [None]
